FAERS Safety Report 5311904-X (Version None)
Quarter: 2007Q2

REPORT INFORMATION
  Report Type: 
  Country: None (occurrence: None)
  Receive Date: 20070430
  Receipt Date: 20060425
  Transmission Date: 20071010
  Serious: No
  Sender: FDA-Public Use
  Company Number: 2006UW07367

PATIENT
  Age: 36 Year
  Sex: Male

DRUGS (3)
  1. NEXIUM [Suspect]
     Indication: GASTRITIS
     Dosage: 2 DOSES
     Route: 048
     Dates: start: 20060424
  2. NEXIUM [Suspect]
     Indication: CHEST PAIN
     Dosage: 2 DOSES
     Route: 048
     Dates: start: 20060424
  3. NEXIUM [Suspect]
     Indication: DYSPEPSIA
     Dosage: 2 DOSES
     Route: 048
     Dates: start: 20060424

REACTIONS (1)
  - CHEST PAIN [None]
